FAERS Safety Report 6639050-3 (Version None)
Quarter: 2010Q1

REPORT INFORMATION
  Report Type: 
  Country: None (occurrence: None)
  Receive Date: 20100317
  Receipt Date: 20100304
  Transmission Date: 20100710
  Serious: Yes (Other)
  Sender: FDA-Public Use
  Company Number: IL-GENENTECH-298701

PATIENT
  Age: 11 Year
  Sex: Male

DRUGS (2)
  1. XOLAIR [Suspect]
     Indication: ASTHMA
     Dosage: 375 MG, SINGLE
     Route: 058
  2. XOLAIR [Suspect]
     Dosage: 375 MG, SINGLE
     Route: 058

REACTIONS (1)
  - ASTHMA [None]
